FAERS Safety Report 10185963 (Version 1)
Quarter: 2014Q2

REPORT INFORMATION
  Report Type: Spontaneous
  Country: SE (occurrence: SE)
  Receive Date: 20140521
  Receipt Date: 20140521
  Transmission Date: 20141212
  Serious: Yes (Hospitalization)
  Sender: FDA-Public Use
  Company Number: SE-PFIZER INC-2014135416

PATIENT
  Age: 48 Year
  Sex: Female
  Weight: 89 kg

DRUGS (1)
  1. PROVERA [Suspect]
     Indication: MENORRHAGIA
     Dosage: 10 MG, IN 10 DAYS
     Dates: start: 20140503, end: 20140505

REACTIONS (4)
  - Urticaria [Recovered/Resolved with Sequelae]
  - Pruritus [Recovered/Resolved with Sequelae]
  - Swollen tongue [Recovered/Resolved with Sequelae]
  - Pharyngeal oedema [Recovered/Resolved with Sequelae]
